FAERS Safety Report 14269056 (Version 4)
Quarter: 2018Q1

REPORT INFORMATION
  Report Type: Spontaneous
  Country: US (occurrence: US)
  Receive Date: 20171211
  Receipt Date: 20180212
  Transmission Date: 20180508
  Serious: Yes (Other)
  Sender: FDA-Public Use
  Company Number: US-TEVA-2017-US-831578

PATIENT
  Sex: Female

DRUGS (1)
  1. PARAGARD T 380A [Suspect]
     Active Substance: COPPER
     Indication: CONTRACEPTION
     Route: 065
     Dates: start: 20160921, end: 20171108

REACTIONS (5)
  - Pain [Unknown]
  - Abdominal pain [Unknown]
  - Device breakage [Unknown]
  - Infertility female [Unknown]
  - Device dislocation [Unknown]
